FAERS Safety Report 9803957 (Version 1)
Quarter: 2014Q1

REPORT INFORMATION
  Report Type: Spontaneous
  Country: KR (occurrence: None)
  Receive Date: 20140103
  Receipt Date: 20140103
  Transmission Date: 20141002
  Serious: Yes (Hospitalization)
  Sender: FDA-Public Use
  Company Number: 2013PL000222

PATIENT
  Sex: 0

DRUGS (1)
  1. AZATHIOPRINE (AZATHIOPRINE) [Suspect]
     Indication: IRRITABLE BOWEL SYNDROME

REACTIONS (1)
  - Stomatitis [None]
